FAERS Safety Report 7529940-1 (Version None)
Quarter: 2011Q2

REPORT INFORMATION
  Report Type: 
  Country: None (occurrence: None)
  Receive Date: 20110607
  Receipt Date: 20110523
  Transmission Date: 20111010
  Serious: Yes (Other)
  Sender: FDA-Public Use
  Company Number: US-WATSON-2011-07123

PATIENT
  Sex: Female

DRUGS (5)
  1. ALENDRONATE SODIUM [Suspect]
     Indication: OSTEOPOROSIS
     Dosage: UNK
     Route: 048
     Dates: start: 20090101, end: 20100101
  2. FOSAMAX [Suspect]
     Indication: OSTEOPENIA
  3. FOSAMAX [Suspect]
     Indication: OSTEOPOROSIS
     Dosage: UNK
     Route: 048
     Dates: start: 20040101, end: 20090101
  4. BONIVA [Suspect]
     Indication: OSTEOPOROSIS
     Dosage: UNK
     Route: 048
     Dates: start: 20100201, end: 20101201
  5. BONIVA [Suspect]
     Indication: OSTEOPENIA

REACTIONS (4)
  - STRESS FRACTURE [None]
  - FEMUR FRACTURE [None]
  - OSTEOGENESIS IMPERFECTA [None]
  - INCORRECT DRUG ADMINISTRATION DURATION [None]
